FAERS Safety Report 5132965-7 (Version None)
Quarter: 2006Q4

REPORT INFORMATION
  Report Type: 
  Country: None (occurrence: None)
  Receive Date: 20061017
  Receipt Date: 20061002
  Transmission Date: 20070319
  Serious: Yes (Hospitalization, Other)
  Sender: FDA-Public Use
  Company Number: RB-4103-2006

PATIENT
  Age: 3 Day

DRUGS (1)
  1. SUBUTEX [Suspect]
     Dosage: 1 SUBLINGUAL TABLET, 4MG BID; TRANSPLACENTAL; 2MG
     Route: 064

REACTIONS (3)
  - DRUG EXPOSURE DURING PREGNANCY [None]
  - NEONATAL DISORDER [None]
  - VOMITING NEONATAL [None]
